FAERS Safety Report 5794908-2 (Version None)
Quarter: 2008Q2

REPORT INFORMATION
  Report Type: 
  Country: None (occurrence: None)
  Receive Date: 20080627
  Receipt Date: 20080627
  Transmission Date: 20081010
  Serious: No
  Sender: FDA-Public Use
  Company Number: None

PATIENT
  Sex: Female

DRUGS (1)
  1. GADOBENATE DIMEGLUMINE BRACCO DIAGNOSTICS [Suspect]
     Dosage: IV
     Route: 042

REACTIONS (1)
  - VOMITING [None]
